FAERS Safety Report 9091763 (Version 1)
Quarter: 2013Q1

REPORT INFORMATION
  Report Type: Spontaneous
  Country: US (occurrence: US)
  Receive Date: 20130218
  Receipt Date: 20130218
  Transmission Date: 20140127
  Serious: No
  Sender: FDA-Public Use
  Company Number: US-ABBOTT-12P-163-0940043-00

PATIENT
  Sex: Female

DRUGS (2)
  1. SIMCOR 500MG/20MG [Suspect]
     Indication: BLOOD TRIGLYCERIDES INCREASED
     Dosage: 500/20X 3 TABS
  2. 2 UNKNOWN GLACOMA DROPS [Concomitant]
     Indication: PRODUCT USED FOR UNKNOWN INDICATION

REACTIONS (1)
  - Flushing [Recovered/Resolved]
